FAERS Safety Report 6996965-4 (Version None)
Quarter: 2010Q3

REPORT INFORMATION
  Report Type: 
  Country: None (occurrence: None)
  Receive Date: 20100918
  Receipt Date: 20090930
  Transmission Date: 20110219
  Serious: No
  Sender: FDA-Public Use
  Company Number: US-WYE-H10798509

PATIENT
  Sex: Female
  Weight: 55.84 kg

DRUGS (14)
  1. PRISTIQ [Suspect]
     Indication: MAJOR DEPRESSION
     Route: 048
     Dates: start: 20090622, end: 20090101
  2. PRISTIQ [Suspect]
     Route: 048
     Dates: start: 20090101, end: 20090825
  3. VITAMIN B COMPLEX CAP [Concomitant]
  4. FISH OIL, HYDROGENATED [Concomitant]
  5. GINKGO BILOBA [Concomitant]
  6. FLAXSEED [Concomitant]
  7. LIDODERM [Concomitant]
  8. VAGIFEM [Concomitant]
  9. TENUATE [Concomitant]
  10. KLONOPIN [Concomitant]
  11. VALIUM [Concomitant]
  12. VICODIN [Concomitant]
  13. GELATIN [Concomitant]
  14. ACTONEL [Concomitant]

REACTIONS (16)
  - APHTHOUS STOMATITIS [None]
  - BALANCE DISORDER [None]
  - CONDITION AGGRAVATED [None]
  - CONSTIPATION [None]
  - CONTUSION [None]
  - DEHYDRATION [None]
  - DRUG HYPERSENSITIVITY [None]
  - FATIGUE [None]
  - GINGIVAL BLEEDING [None]
  - JOINT SWELLING [None]
  - LOSS OF LIBIDO [None]
  - OEDEMA PERIPHERAL [None]
  - PRURITUS [None]
  - RASH ERYTHEMATOUS [None]
  - SALT CRAVING [None]
  - WEIGHT INCREASED [None]
